FAERS Safety Report 5986360-9 (Version None)
Quarter: 2008Q4

REPORT INFORMATION
  Report Type: 
  Country: None (occurrence: None)
  Receive Date: 20081209
  Receipt Date: 20081127
  Transmission Date: 20090506
  Serious: Yes (Hospitalization, Other)
  Sender: FDA-Public Use
  Company Number: GB-NOVOPROD-279368

PATIENT
  Sex: Female
  Weight: 76.5 kg

DRUGS (6)
  1. NORDITROPIN [Suspect]
     Indication: GROWTH HORMONE DEFICIENCY
     Dosage: .2 MG, UNK
     Dates: start: 20080905, end: 20080905
  2. HYDROCORTISONE [Concomitant]
     Dates: start: 20050501
  3. LEVOTHYROXINE SODIUM [Concomitant]
     Dosage: 75 UG, QD
  4. DESMOPRESSIN ACETATE [Concomitant]
     Dosage: 100 UG, PRN
  5. LOSARTAN POTASSIUM [Concomitant]
     Dosage: 50 MG, QD
  6. LANSOPRAZOLE [Concomitant]
     Dosage: 15 MG, QD

REACTIONS (3)
  - DYSPHASIA [None]
  - HEADACHE [None]
  - VISUAL IMPAIRMENT [None]
